FAERS Safety Report 5303710-7 (Version None)
Quarter: 2007Q2

REPORT INFORMATION
  Report Type: 
  Country: None (occurrence: None)
  Receive Date: 20070420
  Receipt Date: 20070416
  Transmission Date: 20071010
  Serious: Yes (Hospitalization)
  Sender: FDA-Public Use
  Company Number: JP-MERCK-0704USA03524

PATIENT
  Age: 87 Year
  Sex: Female

DRUGS (2)
  1. STROMECTOL [Suspect]
     Indication: ACARODERMATITIS
     Route: 048
     Dates: start: 20060903, end: 20060903
  2. STROMECTOL [Suspect]
     Route: 048
     Dates: start: 20060910, end: 20060910

REACTIONS (1)
  - PNEUMONIA [None]
